FAERS Safety Report 20746342 (Version 1)
Quarter: 2022Q2

REPORT INFORMATION
  Report Type: Spontaneous
  Country: JP (occurrence: JP)
  Receive Date: 20220425
  Receipt Date: 20220425
  Transmission Date: 20220720
  Serious: Yes (Other)
  Sender: FDA-Public Use
  Company Number: JP-PERRIGO-22JP005660

PATIENT
  Age: 24 Year
  Sex: Female

DRUGS (2)
  1. ACETAMINOPHEN [Suspect]
     Active Substance: ACETAMINOPHEN
     Indication: Stevens-Johnson syndrome
     Dosage: UNKNOWN, UNKNOWN
     Route: 048
  2. ACETAMINOPHEN [Suspect]
     Active Substance: ACETAMINOPHEN
     Indication: Toxic epidermal necrolysis

REACTIONS (2)
  - Toxic epidermal necrolysis [Unknown]
  - Stevens-Johnson syndrome [Unknown]
